FAERS Safety Report 8859223 (Version 1)
Quarter: 2012Q4

REPORT INFORMATION
  Report Type: 
  Country: CN (occurrence: CN)
  Receive Date: 20121024
  Receipt Date: 20121024
  Transmission Date: 20130627
  Serious: Yes (Other)
  Sender: FDA-Public Use
  Company Number: CN-PFIZER INC-2012262773

PATIENT
  Age: 55 Year
  Sex: Male

DRUGS (1)
  1. NORVASC [Suspect]
     Dosage: UNK
     Route: 048
     Dates: start: 2009

REACTIONS (5)
  - Toxicity to various agents [Unknown]
  - Depressed level of consciousness [Unknown]
  - Depression [Unknown]
  - Anxiety [Unknown]
  - Dyskinesia [Unknown]
